FAERS Safety Report 16312334 (Version 1)
Quarter: 2019Q2

REPORT INFORMATION
  Report Type: Report from Study
  Country: US (occurrence: US)
  Receive Date: 20190515
  Receipt Date: 20190515
  Transmission Date: 20190711
  Serious: Yes (Other)
  Sender: FDA-Public Use
  Company Number: US-UCBSA-2019019020

PATIENT

DRUGS (4)
  1. LACOSAMIDE. [Suspect]
     Active Substance: LACOSAMIDE
     Dosage: 100 IN THE MORNING AND 200 AT NIGHT
  2. LACOSAMIDE. [Suspect]
     Active Substance: LACOSAMIDE
     Dosage: 500MILLIGRAM
  3. LACOSAMIDE. [Suspect]
     Active Substance: LACOSAMIDE
     Dosage: 600MG DAILY
  4. LACOSAMIDE. [Suspect]
     Active Substance: LACOSAMIDE
     Indication: PRODUCT USED FOR UNKNOWN INDICATION
     Dosage: 200 MILLIGRAM

REACTIONS (14)
  - Amnesia [Unknown]
  - Loss of control of legs [Unknown]
  - Depression [Unknown]
  - Mental impairment [Unknown]
  - Intentional product misuse [Unknown]
  - Suicidal ideation [Unknown]
  - Fear [Unknown]
  - Generalised tonic-clonic seizure [Unknown]
  - Gait inability [Unknown]
  - Hypersomnia [Unknown]
  - Diplopia [Unknown]
  - Hypoaesthesia [Unknown]
  - Feeling abnormal [Unknown]
  - Depressed mood [Unknown]
